FAERS Safety Report 6684368-1 (Version None)
Quarter: 2010Q2

REPORT INFORMATION
  Report Type: 
  Country: None (occurrence: None)
  Receive Date: 20100416
  Receipt Date: 20100408
  Transmission Date: 20101027
  Serious: Yes (Hospitalization, Other)
  Sender: FDA-Public Use
  Company Number: AU-ABBOTT-08P-008-0492159-00

PATIENT
  Age: 42 Year
  Sex: Male

DRUGS (2)
  1. KALETRA [Suspect]
     Indication: DRUG USE FOR UNKNOWN INDICATION
     Dosage: 400MG/100MG BD
  2. KIVEXA [Concomitant]
     Indication: ANTIRETROVIRAL THERAPY
     Dosage: 600MG/300MG DAILY

REACTIONS (3)
  - ARRHYTHMIA [None]
  - DIZZINESS [None]
  - SICK SINUS SYNDROME [None]
